FAERS Safety Report 6713493-1 (Version None)
Quarter: 2010Q2

REPORT INFORMATION
  Report Type: 
  Country: None (occurrence: None)
  Receive Date: 20100506
  Receipt Date: 20100426
  Transmission Date: 20101027
  Serious: Yes (Hospitalization)
  Sender: FDA-Public Use
  Company Number: US-SANOFI-AVENTIS-2010SA020278

PATIENT
  Age: 68 Year
  Sex: Female
  Weight: 104 kg

DRUGS (2)
  1. LANTUS [Suspect]
     Indication: TYPE 2 DIABETES MELLITUS
     Dosage: 36 UNITS IN AM AND 32 UNITS IN PMI
     Route: 058
     Dates: start: 20091101
  2. SOLOSTAR [Suspect]
     Indication: TYPE 2 DIABETES MELLITUS
     Dates: start: 20091101

REACTIONS (1)
  - RECTAL HAEMORRHAGE [None]
